FAERS Safety Report 10525974 (Version 2)
Quarter: 2014Q4

REPORT INFORMATION
  Report Type: Spontaneous
  Country: JP (occurrence: JP)
  Receive Date: 20141017
  Receipt Date: 20141121
  Transmission Date: 20150528
  Serious: Yes (Hospitalization, Other)
  Sender: FDA-Public Use
  Company Number: PHHY2014JP135224

PATIENT
  Age: 46 Year
  Sex: Female

DRUGS (3)
  1. EXELON PATCH [Suspect]
     Active Substance: RIVASTIGMINE
     Dosage: 13.5 MG DAILY (6.9 MG/24 HOURS)
     Route: 062
     Dates: start: 20120111, end: 20120125
  2. EXELON PATCH [Suspect]
     Active Substance: RIVASTIGMINE
     Dosage: 9 MG DAILY (4.6MG/ 24HOURS).
     Route: 062
     Dates: start: 20111214, end: 20120110
  3. EXELON PATCH [Suspect]
     Active Substance: RIVASTIGMINE
     Indication: DEMENTIA ALZHEIMER^S TYPE
     Dosage: 4.5 MG DAILY (1.9 MG/24 HOURS).
     Route: 062
     Dates: start: 20111115, end: 20111213

REACTIONS (3)
  - Dementia Alzheimer^s type [Unknown]
  - Pancytopenia [Unknown]
  - Myelodysplastic syndrome [Unknown]

NARRATIVE: CASE EVENT DATE: 20130116
